FAERS Safety Report 21818050 (Version 1)
Quarter: 2023Q1

REPORT INFORMATION
  Report Type: Spontaneous
  Country: US (occurrence: US)
  Receive Date: 20230104
  Receipt Date: 20230104
  Transmission Date: 20230418
  Serious: Yes (Hospitalization, Other)
  Sender: FDA-Public Use
  Company Number: US-COOPERSURGICAL, INC.-US-2022CPS001902

PATIENT
  Sex: Female

DRUGS (1)
  1. PARAGARD T 380A [Suspect]
     Active Substance: COPPER
     Indication: Product used for unknown indication
     Dosage: UNK
     Route: 015
     Dates: start: 2020

REACTIONS (5)
  - Pelvic inflammatory disease [Not Recovered/Not Resolved]
  - Abdominal pain [Unknown]
  - Sexually transmitted disease [Unknown]
  - Menstruation delayed [Unknown]
  - Pain [Unknown]

NARRATIVE: CASE EVENT DATE: 20220101
